FAERS Safety Report 5628523-8 (Version None)
Quarter: 2008Q1

REPORT INFORMATION
  Report Type: 
  Country: None (occurrence: None)
  Receive Date: 20080214
  Receipt Date: 20080214
  Transmission Date: 20080703
  Serious: No
  Sender: FDA-Public Use
  Company Number: None

PATIENT
  Age: 11 Year
  Sex: Male

DRUGS (1)
  1. WART AND MOLE VANISH   PRISTINE HERBAL TOUCH [Suspect]
     Indication: MELANOCYTIC NAEVUS
     Dosage: SMALL AMOUNT ONCE TOP
     Route: 061

REACTIONS (3)
  - APPLICATION SITE PAIN [None]
  - KELOID SCAR [None]
  - PHARMACEUTICAL PRODUCT COMPLAINT [None]
